FAERS Safety Report 7883850-9 (Version None)
Quarter: 2011Q4

REPORT INFORMATION
  Report Type: 
  Country: None (occurrence: None)
  Receive Date: 20111102
  Receipt Date: 20111020
  Transmission Date: 20120403
  Serious: Yes (Hospitalization, Other)
  Sender: FDA-Public Use
  Company Number: CA-ELI_LILLY_AND_COMPANY-CA201110005385

PATIENT

DRUGS (12)
  1. ZYPREXA [Suspect]
     Dosage: 5 MG, QD
  2. ATIVAN [Concomitant]
  3. REMERON [Concomitant]
  4. TEMAZEPAM [Concomitant]
  5. CLONAZEPAM [Concomitant]
  6. ZYPREXA [Suspect]
     Dosage: 15 MG, QD
  7. OXYCONTIN [Concomitant]
  8. LIPITOR [Concomitant]
  9. ZYPREXA [Suspect]
     Dosage: 10 MG, QD
     Dates: start: 20060224
  10. DOMPERIDONE [Concomitant]
  11. WELLBUTRIN SR [Concomitant]
  12. LYRICA [Concomitant]

REACTIONS (4)
  - DIABETES MELLITUS [None]
  - CAROTID ARTERY STENOSIS [None]
  - CEREBROVASCULAR ACCIDENT [None]
  - DIABETIC KETOACIDOSIS [None]
